FAERS Safety Report 17853732 (Version 1)
Quarter: 2020Q2

REPORT INFORMATION
  Report Type: Spontaneous
  Country: DE (occurrence: DE)
  Receive Date: 20200602
  Receipt Date: 20200602
  Transmission Date: 20200714
  Serious: Yes (Death, Hospitalization)
  Sender: FDA-Public Use
  Company Number: DE-BAXTER-2020BAX011390

PATIENT
  Sex: Female
  Weight: 92 kg

DRUGS (6)
  1. PEGFILGRASTIM [Suspect]
     Active Substance: PEGFILGRASTIM
     Route: 058
     Dates: start: 20200131
  2. PEGFILGRASTIM [Suspect]
     Active Substance: PEGFILGRASTIM
     Route: 058
     Dates: start: 20200109
  3. DOXIL [Suspect]
     Active Substance: DOXORUBICIN HYDROCHLORIDE
     Indication: BRONCHIAL CARCINOMA
     Dosage: 3RD CYCLE
     Route: 042
     Dates: start: 20200504, end: 20200504
  4. VINCRISTINE [Concomitant]
     Active Substance: VINCRISTINE
     Indication: BRONCHIAL CARCINOMA
     Route: 065
  5. ENDOXAN 1G [Suspect]
     Active Substance: CYCLOPHOSPHAMIDE
     Indication: BRONCHIAL CARCINOMA
     Dosage: 3RD CYCLE
     Route: 042
     Dates: start: 20200504, end: 20200504
  6. PEGFILGRASTIM [Suspect]
     Active Substance: PEGFILGRASTIM
     Indication: PRODUCT USED FOR UNKNOWN INDICATION
     Dosage: CYCLE 3
     Route: 058
     Dates: start: 20200318

REACTIONS (6)
  - Agranulocytosis [Unknown]
  - Atypical pneumonia [Recovered/Resolved]
  - Pancytopenia [Unknown]
  - Mucosal inflammation [Unknown]
  - Sepsis [Fatal]
  - COVID-19 [Recovered/Resolved]

NARRATIVE: CASE EVENT DATE: 20200222
